FAERS Safety Report 5919878-5 (Version None)
Quarter: 2008Q4

REPORT INFORMATION
  Report Type: 
  Country: None (occurrence: None)
  Receive Date: 20081015
  Receipt Date: 20080905
  Transmission Date: 20090506
  Serious: Yes (Other)
  Sender: FDA-Public Use
  Company Number: SE-GENENTECH-269747

PATIENT
  Age: 28 Year
  Sex: Female

DRUGS (6)
  1. AVASTIN [Suspect]
     Indication: RHABDOMYOSARCOMA
     Dosage: 5 MG/KG, UNK
     Route: 065
     Dates: start: 20060601
  2. SIMVASTATIN [Suspect]
     Indication: RHABDOMYOSARCOMA
     Dosage: 40 MG, UNK
     Route: 065
  3. VINBLASTINE SULFATE [Suspect]
     Indication: DRUG USE FOR UNKNOWN INDICATION
     Dosage: 3 MG/M2, UNK
     Route: 065
  4. CYCLOPHOSPHAMIDE [Suspect]
     Indication: DRUG USE FOR UNKNOWN INDICATION
     Dosage: 50 MG/L, BID
     Route: 048
  5. GEMFIBROZIL [Suspect]
     Indication: LIPIDS INCREASED
     Dosage: 600 MG, BID
     Route: 065
  6. CISPLATIN [Concomitant]
     Indication: DRUG USE FOR UNKNOWN INDICATION

REACTIONS (9)
  - AMENORRHOEA [None]
  - BONE GRAFT [None]
  - CYSTITIS HAEMORRHAGIC [None]
  - CYSTITIS RADIATION [None]
  - DYSPHAGIA [None]
  - FISTULA [None]
  - IMPAIRED HEALING [None]
  - MUCOSAL INFLAMMATION [None]
  - MUSCLE DISORDER [None]
